FAERS Safety Report 6000995-9 (Version None)
Quarter: 2008Q4

REPORT INFORMATION
  Report Type: 
  Country: None (occurrence: None)
  Receive Date: 20081215
  Receipt Date: 20080110
  Transmission Date: 20090506
  Serious: No
  Sender: FDA-Public Use
  Company Number: US-BRISTOL-MYERS SQUIBB COMPANY-14036750

PATIENT
  Age: 49 Year
  Sex: Male
  Weight: 77 kg

DRUGS (4)
  1. CHOLESTYRAMINE [Suspect]
     Indication: CROHN'S DISEASE
     Route: 048
     Dates: start: 20061101
  2. PENTASA [Concomitant]
  3. ATENOLOL [Concomitant]
     Dosage: THERAPY DURATION 7-8 YEARS
  4. ENALAPRIL MALEATE [Concomitant]

REACTIONS (1)
  - HYPERSENSITIVITY [None]
